FAERS Safety Report 17487686 (Version 1)
Quarter: 2020Q1

REPORT INFORMATION
  Report Type: Spontaneous
  Country: DE (occurrence: DE)
  Receive Date: 20200303
  Receipt Date: 20200303
  Transmission Date: 20200409
  Serious: Yes (Other)
  Sender: FDA-Public Use
  Company Number: DE-PFIZER INC-2020090267

PATIENT
  Age: 37 Year
  Sex: Female

DRUGS (1)
  1. CYTOTEC [Suspect]
     Active Substance: MISOPROSTOL
     Indication: LABOUR INDUCTION
     Dosage: UNK
     Dates: start: 20181022, end: 20181022

REACTIONS (8)
  - Haemolytic uraemic syndrome [Unknown]
  - Off label use [Unknown]
  - Labour pain [Unknown]
  - Uterine atony [Unknown]
  - Product use in unapproved indication [Unknown]
  - HELLP syndrome [Unknown]
  - Abnormal labour [Unknown]
  - Uterine haemorrhage [Unknown]

NARRATIVE: CASE EVENT DATE: 20181022
